FAERS Safety Report 4485534-6 (Version None)
Quarter: 2004Q4

REPORT INFORMATION
  Report Type: 
  Country: None (occurrence: None)
  Receive Date: 20041021
  Receipt Date: 20041006
  Transmission Date: 20050328
  Serious: Yes (Death)
  Sender: FDA-Public Use
  Company Number: 2004AL000526

PATIENT
  Age: 76 Year

DRUGS (4)
  1. KADIAN [Suspect]
  2. GUIATUSS DM (GUIAFENESIN AND DEXTROMETHORPHAN HYDROBROMIDE, 100MG/10MG [Suspect]
     Dosage: PO
     Route: 048
  3. CODEINE [Suspect]
  4. ASPIRIN [Suspect]

REACTIONS (2)
  - COMPLETED SUICIDE [None]
  - MULTIPLE DRUG OVERDOSE INTENTIONAL [None]
